FAERS Safety Report 7974452-4 (Version None)
Quarter: 2011Q4

REPORT INFORMATION
  Report Type: 
  Country: None (occurrence: None)
  Receive Date: 20111213
  Receipt Date: 20111208
  Transmission Date: 20120403
  Serious: Yes (Hospitalization)
  Sender: FDA-Public Use
  Company Number: US-GILEAD-2011-0046618

PATIENT
  Sex: Female

DRUGS (5)
  1. SILDENAFIL [Concomitant]
  2. LASIX [Concomitant]
  3. ILOPROST [Concomitant]
  4. LETAIRIS [Suspect]
     Indication: PULMONARY ARTERIAL HYPERTENSION
     Dosage: 5 MG, UNK
     Route: 048
     Dates: start: 20110816
  5. OXYGEN [Concomitant]

REACTIONS (5)
  - OXYGEN SUPPLEMENTATION [None]
  - DYSPNOEA [None]
  - PNEUMONIA [None]
  - PULMONARY ARTERIAL HYPERTENSION [None]
  - PULMONARY OEDEMA [None]
